FAERS Safety Report 15986660 (Version 1)
Quarter: 2019Q1

REPORT INFORMATION
  Report Type: Spontaneous
  Country: TW (occurrence: TW)
  Receive Date: 20190220
  Receipt Date: 20190220
  Transmission Date: 20190418
  Serious: Yes (Death)
  Sender: FDA-Public Use
  Company Number: TW-PFIZER INC-2019072908

PATIENT
  Age: 49 Year
  Sex: Female

DRUGS (8)
  1. CEFTRIAXONE. [Suspect]
     Active Substance: CEFTRIAXONE
     Indication: SEPTIC SHOCK
  2. DOPAMINE [Suspect]
     Active Substance: DOPAMINE\DOPAMINE HYDROCHLORIDE
     Indication: SEPTIC SHOCK
     Dosage: UNK
  3. VANCOMYCIN HCL [Suspect]
     Active Substance: VANCOMYCIN HYDROCHLORIDE
     Indication: AEROMONAS INFECTION
     Dosage: 1000 MG, 2X/DAY
  4. CEFTRIAXONE. [Suspect]
     Active Substance: CEFTRIAXONE
     Indication: AEROMONAS INFECTION
     Dosage: 2000 MG, 1X/DAY
  5. GLUCOSE WATER [Suspect]
     Active Substance: DEXTROSE
     Indication: SEPTIC SHOCK
  6. NOREPINEPHRINE BITARTRATE. [Suspect]
     Active Substance: NOREPINEPHRINE BITARTRATE
     Indication: SEPTIC SHOCK
     Dosage: UNK
  7. VANCOMYCIN HCL [Suspect]
     Active Substance: VANCOMYCIN HYDROCHLORIDE
     Indication: SEPTIC SHOCK
  8. GLUCOSE WATER [Suspect]
     Active Substance: DEXTROSE
     Indication: AEROMONAS INFECTION
     Dosage: UNK

REACTIONS (1)
  - Drug ineffective [Fatal]
